FAERS Safety Report 10516953 (Version 1)
Quarter: 2014Q4

REPORT INFORMATION
  Report Type: Spontaneous
  Country: US (occurrence: None)
  Receive Date: 20141003
  Receipt Date: 20141003
  Transmission Date: 20150528
  Serious: Yes (Other)
  Sender: FDA-Public Use
  Company Number: 1075845

PATIENT
  Age: 55 Year
  Sex: Female
  Weight: 78.93 kg

DRUGS (7)
  1. PEGASYS [Suspect]
     Active Substance: PEGINTERFERON ALFA-2A
     Route: 058
     Dates: start: 20120412
  2. LEXAPRO [Concomitant]
     Active Substance: ESCITALOPRAM OXALATE
  3. AMBIEN CR (ZOLPIDEM TARTRATE) [Concomitant]
  4. INCIVEK [Suspect]
     Active Substance: TELAPREVIR
  5. XANAX [Concomitant]
     Active Substance: ALPRAZOLAM
  6. MEDROL (METHYLOPREDNISLONE) [Concomitant]
  7. LISINORIL [Concomitant]

REACTIONS (8)
  - Dyspnoea [None]
  - Anxiety [None]
  - Influenza like illness [None]
  - Fatigue [None]
  - Pruritus [None]
  - Homicidal ideation [None]
  - Poor quality sleep [None]
  - Anger [None]
